FAERS Safety Report 21050286 (Version 1)
Quarter: 2022Q3

REPORT INFORMATION
  Report Type: Spontaneous
  Country: BR (occurrence: BR)
  Receive Date: 20220707
  Receipt Date: 20220707
  Transmission Date: 20221027
  Serious: Yes (Life-Threatening)
  Sender: FDA-Public Use
  Company Number: BR-drreddys-LIT/BRA/22/0151944

PATIENT
  Sex: Female

DRUGS (10)
  1. PREGABALIN [Suspect]
     Active Substance: PREGABALIN
     Indication: COVID-19
  2. PREGABALIN [Suspect]
     Active Substance: PREGABALIN
     Indication: Headache
  3. AMITRIPTYLINE [Suspect]
     Active Substance: AMITRIPTYLINE
     Indication: COVID-19
  4. AMITRIPTYLINE [Suspect]
     Active Substance: AMITRIPTYLINE
     Indication: Headache
  5. DIPYRONE [Suspect]
     Active Substance: DIPYRONE
     Indication: COVID-19
  6. DIPYRONE [Suspect]
     Active Substance: DIPYRONE
     Indication: Headache
  7. ACETAMINOPHEN [Suspect]
     Active Substance: ACETAMINOPHEN
     Indication: COVID-19
  8. ACETAMINOPHEN [Suspect]
     Active Substance: ACETAMINOPHEN
     Indication: Headache
  9. PARECOXIB [Suspect]
     Active Substance: PARECOXIB
     Indication: COVID-19
  10. PARECOXIB [Suspect]
     Active Substance: PARECOXIB
     Indication: Headache

REACTIONS (1)
  - Drug ineffective [Unknown]
